FAERS Safety Report 6665779-7 (Version None)
Quarter: 2010Q2

REPORT INFORMATION
  Report Type: 
  Country: None (occurrence: None)
  Receive Date: 20100402
  Receipt Date: 20100323
  Transmission Date: 20101027
  Serious: Yes (Death, Life-Threatening, Hospitalization, Other)
  Sender: FDA-Public Use
  Company Number: US-JNJFOC-20090907908

PATIENT
  Sex: Male

DRUGS (1)
  1. REMICADE [Suspect]
     Indication: COLITIS ULCERATIVE
     Route: 042
     Dates: start: 20060101

REACTIONS (4)
  - DEATH [None]
  - HEPATIC HAEMORRHAGE [None]
  - HEPATOSPLENIC T-CELL LYMPHOMA [None]
  - RENAL DISORDER [None]
